FAERS Safety Report 7902083-0 (Version None)
Quarter: 2011Q4

REPORT INFORMATION
  Report Type: 
  Country: None (occurrence: None)
  Receive Date: 20111108
  Receipt Date: 20111028
  Transmission Date: 20120403
  Serious: Yes (Other)
  Sender: FDA-Public Use
  Company Number: US-BAYER-2011-049530

PATIENT
  Age: 37 Year
  Sex: Female
  Weight: 101.13 kg

DRUGS (5)
  1. YASMIN [Suspect]
     Dosage: UNK
     Dates: start: 20080901, end: 20100101
  2. DROSPIRENONE AND ETHINYL ESTRADIOL [Suspect]
     Dosage: UNK
     Dates: start: 20080901, end: 20100101
  3. WELLBUTRIN [Concomitant]
     Dosage: 150 MG, DAILY
     Route: 048
  4. YAZ [Suspect]
     Dosage: UNK
     Dates: start: 20080901, end: 20100101
  5. BENICAR [Concomitant]
     Dosage: 20 MG, DAILY
     Route: 048

REACTIONS (7)
  - CHOLECYSTITIS CHRONIC [None]
  - GENERAL PHYSICAL HEALTH DETERIORATION [None]
  - GALLBLADDER DISORDER [None]
  - EMOTIONAL DISTRESS [None]
  - ANXIETY [None]
  - PAIN [None]
  - INJURY [None]
